FAERS Safety Report 23612835 (Version 1)
Quarter: 2024Q1

REPORT INFORMATION
  Report Type: Spontaneous
  Country: US (occurrence: US)
  Receive Date: 20240308
  Receipt Date: 20240308
  Transmission Date: 20240409
  Serious: No
  Sender: FDA-Public Use
  Company Number: US-SA-SAC20240304000529

PATIENT
  Age: 49 Year
  Sex: Female

DRUGS (1)
  1. DUPIXENT [Suspect]
     Active Substance: DUPILUMAB
     Indication: Dermatitis atopic
     Dosage: 300 MG, QOW
     Route: 058
     Dates: start: 20231207

REACTIONS (5)
  - Rash pruritic [Not Recovered/Not Resolved]
  - Lip erythema [Not Recovered/Not Resolved]
  - Skin swelling [Recovered/Resolved]
  - Blepharitis [Recovered/Resolved]
  - Injection site erythema [Recovered/Resolved]
